FAERS Safety Report 6378650-5 (Version None)
Quarter: 2009Q3

REPORT INFORMATION
  Report Type: 
  Country: None (occurrence: None)
  Receive Date: 20090928
  Receipt Date: 20090917
  Transmission Date: 20100115
  Serious: Yes (Hospitalization)
  Sender: FDA-Public Use
  Company Number: JP-ELI_LILLY_AND_COMPANY-JP200909002768

PATIENT
  Sex: Male
  Weight: 71 kg

DRUGS (16)
  1. PEMETREXED [Suspect]
     Indication: NON-SMALL CELL LUNG CANCER
     Dosage: 500 MG/M2, OTHER
     Route: 042
     Dates: start: 20090807
  2. CISPLATIN [Suspect]
     Indication: NON-SMALL CELL LUNG CANCER
     Dosage: 75 MG/M2, OTHER
     Route: 042
     Dates: start: 20090807
  3. AG-013736(AXITINIB) [Suspect]
     Indication: NON-SMALL CELL LUNG CANCER
     Dosage: 5 MG, OTHER
     Route: 048
     Dates: start: 20090808
  4. SALOBEL [Concomitant]
     Indication: GOUT
     Dosage: UNK, UNKNOWN
     Route: 048
     Dates: start: 20090828
  5. DIOVAN [Concomitant]
     Indication: HYPERTENSION
     Dosage: 80 MG, UNKNOWN
     Route: 048
     Dates: start: 20090820
  6. AMLODINE [Concomitant]
     Indication: HYPERTENSION
     Dosage: 2.5 MG, UNKNOWN
     Route: 048
     Dates: start: 20090901
  7. CALONAL [Concomitant]
     Indication: PAIN
     Dosage: UNK, UNKNOWN
     Route: 065
     Dates: start: 20090730
  8. LASIX [Concomitant]
     Dates: start: 20090829
  9. ZOFRAN ZYDIS [Concomitant]
     Indication: PROPHYLAXIS OF NAUSEA AND VOMITING
     Dosage: UNK, UNKNOWN
     Route: 048
     Dates: start: 20090829, end: 20090830
  10. MUCODYNE [Concomitant]
     Indication: PRODUCTIVE COUGH
     Dosage: UNK, UNKNOWN
     Route: 048
     Dates: start: 20090716
  11. PRIMPERAN /00041901/ [Concomitant]
     Indication: PROPHYLAXIS OF NAUSEA AND VOMITING
     Dosage: UNK, UNKNOWN
     Route: 065
     Dates: start: 20090820
  12. OPSO [Concomitant]
     Indication: PAIN
     Dosage: UNK, UNKNOWN
     Route: 048
     Dates: start: 20090808
  13. SENNOSIDE [Concomitant]
     Indication: CONSTIPATION
     Dosage: UNK, UNKNOWN
     Route: 048
     Dates: start: 20090808
  14. WINTERMIN [Concomitant]
     Indication: HICCUPS
     Dosage: UNK, UNKNOWN
     Route: 065
     Dates: start: 20090829
  15. SELBEX [Concomitant]
     Indication: ABDOMINAL DISCOMFORT
     Dosage: UNK, UNKNOWN
     Route: 048
     Dates: start: 20090812
  16. COLCHICINE [Concomitant]
     Indication: GOUT
     Dosage: UNK, UNKNOWN
     Route: 048
     Dates: start: 20090828, end: 20090828

REACTIONS (1)
  - RENAL TUBULAR NECROSIS [None]
